FAERS Safety Report 4439699-2 (Version None)
Quarter: 2004Q3

REPORT INFORMATION
  Report Type: 
  Country: None (occurrence: None)
  Receive Date: 20040902
  Receipt Date: 20040706
  Transmission Date: 20050211
  Serious: Yes (Other)
  Sender: FDA-Public Use
  Company Number: PHEH2004US07240

PATIENT
  Age: 69 Year
  Sex: Female
  Weight: 73 kg

DRUGS (5)
  1. LOTENSIN [Suspect]
     Indication: HYPERTENSION
     Dosage: 20 MG, QD
     Route: 048
     Dates: start: 20031107
  2. LOTENSIN [Suspect]
     Dosage: 10 MG, QD
     Route: 048
  3. LOTENSIN [Suspect]
     Dosage: 5 MG, QD
     Route: 048
     Dates: start: 19940101
  4. FOSAMAX [Concomitant]
  5. ASPIRIN [Concomitant]

REACTIONS (5)
  - CARDIAC FLUTTER [None]
  - HEART RATE IRREGULAR [None]
  - PALPITATIONS [None]
  - SUPRAVENTRICULAR EXTRASYSTOLES [None]
  - SUPRAVENTRICULAR TACHYCARDIA [None]
